FAERS Safety Report 19589546 (Version 2)
Quarter: 2021Q4

REPORT INFORMATION
  Report Type: Report from Study
  Country: JP (occurrence: JP)
  Receive Date: 20210721
  Receipt Date: 20211020
  Transmission Date: 20220303
  Serious: Yes (Other)
  Sender: FDA-Public Use
  Company Number: JP-ONO-2020JP005725

PATIENT
  Age: 75 Year
  Sex: Female
  Weight: 46 kg

DRUGS (6)
  1. MEKTOVI [Suspect]
     Active Substance: BINIMETINIB
     Indication: Malignant melanoma
     Dosage: 45 MG
     Route: 048
     Dates: start: 20200128, end: 20200129
  2. MEKTOVI [Suspect]
     Active Substance: BINIMETINIB
     Dosage: 90 MG
     Route: 048
     Dates: end: 20200225
  3. MEKTOVI [Suspect]
     Active Substance: BINIMETINIB
     Dosage: 90 MG
     Route: 048
     Dates: start: 20200306, end: 20200315
  4. BRAFTOVI [Suspect]
     Active Substance: ENCORAFENIB
     Indication: Malignant melanoma
     Dosage: 450 MG
     Route: 048
     Dates: start: 20200128, end: 20200129
  5. BRAFTOVI [Suspect]
     Active Substance: ENCORAFENIB
     Dosage: 450 MG
     Route: 048
     Dates: end: 20200225
  6. BRAFTOVI [Suspect]
     Active Substance: ENCORAFENIB
     Dosage: 450 MG
     Route: 048
     Dates: start: 20200306, end: 20200315

REACTIONS (2)
  - Serous retinal detachment [Recovered/Resolved]
  - Serous retinal detachment [Unknown]

NARRATIVE: CASE EVENT DATE: 20200129
